FAERS Safety Report 14559786 (Version 1)
Quarter: 2018Q1

REPORT INFORMATION
  Report Type: Spontaneous
  Country: US (occurrence: US)
  Receive Date: 20180220
  Receipt Date: 20180220
  Transmission Date: 20180509
  Serious: Yes (Death)
  Sender: FDA-Public Use
  Company Number: None

PATIENT
  Age: 79 Year
  Sex: Female
  Weight: 57.15 kg

DRUGS (5)
  1. CAPECITABINE. [Suspect]
     Active Substance: CAPECITABINE
     Indication: PANCREATIC CARCINOMA
     Route: 048
     Dates: start: 20180115, end: 20180217
  2. PROCHLORPERAZINE. [Concomitant]
     Active Substance: PROCHLORPERAZINE
  3. TRIAMTERENE-HCTZ [Concomitant]
     Active Substance: HYDROCHLOROTHIAZIDE\TRIAMTERENE
  4. ATENOLOL. [Concomitant]
     Active Substance: ATENOLOL
  5. ADVIL [Concomitant]
     Active Substance: IBUPROFEN

REACTIONS (1)
  - Disease progression [None]

NARRATIVE: CASE EVENT DATE: 20170217
